FAERS Safety Report 12530894 (Version 1)
Quarter: 2016Q3

REPORT INFORMATION
  Report Type: Spontaneous
  Country: US (occurrence: None)
  Receive Date: 20160705
  Receipt Date: 20160705
  Transmission Date: 20161109
  Serious: Yes (Hospitalization)
  Sender: FDA-Public Use
  Company Number: None

PATIENT
  Age: 18 Year
  Sex: Female
  Weight: 68.04 kg

DRUGS (1)
  1. KEFLEX [Suspect]
     Active Substance: CEPHALEXIN
     Indication: SKIN INFECTION
     Dosage: 1 CAPSULE(S) THREE TIMES A DAY TAKEN BY MOUTH
     Route: 048
     Dates: start: 20160629, end: 20160630

REACTIONS (7)
  - Drug hypersensitivity [None]
  - Dizziness [None]
  - Nausea [None]
  - Lethargy [None]
  - Pharyngeal oedema [None]
  - Diarrhoea [None]
  - Dyspnoea [None]

NARRATIVE: CASE EVENT DATE: 20160630
